FAERS Safety Report 7155207-X (Version None)
Quarter: 2010Q4

REPORT INFORMATION
  Report Type: 
  Country: None (occurrence: None)
  Receive Date: 20101214
  Receipt Date: 20091204
  Transmission Date: 20110411
  Serious: Yes (Hospitalization)
  Sender: FDA-Public Use
  Company Number: US-AMGEN-QUU341595

PATIENT

DRUGS (6)
  1. ENBREL [Suspect]
     Indication: RHEUMATOID ARTHRITIS
     Dosage: 50 MG, QWK
     Route: 058
     Dates: start: 20000101, end: 20090601
  2. LEFLUNOMIDE [Concomitant]
     Dosage: 10 MG, QD
  3. PREDNISONE [Concomitant]
     Dosage: 5 MG, QD
     Dates: start: 20000101
  4. TRIAMTERENE AND HYDROCHLOROTHIAZIDE [Concomitant]
  5. CLORAZEPATE DIPOTASSIUM [Concomitant]
  6. RANITIDINE HYDROCHLORIDE [Concomitant]

REACTIONS (3)
  - AZOTAEMIA [None]
  - GLOMERULAR FILTRATION RATE DECREASED [None]
  - RENAL CELL CARCINOMA [None]
